FAERS Safety Report 10202196 (Version 2)
Quarter: 2014Q2

REPORT INFORMATION
  Report Type: Spontaneous
  Country: DE (occurrence: DE)
  Receive Date: 20140528
  Receipt Date: 20140623
  Transmission Date: 20141212
  Serious: Yes (Congenital Anomaly)
  Sender: FDA-Public Use
  Company Number: DE-GLAXOSMITHKLINE-D0084040A

PATIENT
  Sex: Male
  Weight: .8 kg

DRUGS (5)
  1. LAMOTRIGINE [Suspect]
     Indication: EPILEPSY
     Dosage: 100MG TWICE PER DAY
     Route: 064
     Dates: start: 20121208, end: 20130601
  2. FOLIC ACID [Concomitant]
     Indication: PROPHYLAXIS OF NEURAL TUBE DEFECT
     Dosage: 5MG PER DAY
     Route: 064
     Dates: start: 20121208, end: 20130529
  3. PENHEXAL [Concomitant]
     Indication: RESPIRATORY TRACT INFECTION
     Route: 064
  4. MIFEPRISTONE [Concomitant]
     Indication: ABORTION INDUCED
     Route: 064
     Dates: start: 20130529, end: 20130529
  5. CYTOTEC [Concomitant]
     Indication: ABORTION INDUCED
     Route: 064
     Dates: start: 20130530, end: 20130530

REACTIONS (6)
  - Ventricular septal defect [Not Recovered/Not Resolved]
  - Congenital tricuspid valve atresia [Not Recovered/Not Resolved]
  - Congenital pulmonary valve atresia [Not Recovered/Not Resolved]
  - Double outlet right ventricle [Not Recovered/Not Resolved]
  - Patent ductus arteriosus [Not Recovered/Not Resolved]
  - Foetal exposure during pregnancy [Unknown]
